FAERS Safety Report 23227346 (Version 1)
Quarter: 2023Q4

REPORT INFORMATION
  Report Type: Spontaneous
  Country: US (occurrence: US)
  Receive Date: 20231124
  Receipt Date: 20231124
  Transmission Date: 20240110
  Serious: Yes (Life-Threatening, Other)
  Sender: FDA-Public Use
  Company Number: US-PFIZER INC-202300385743

PATIENT
  Age: 60 Year
  Sex: Female
  Weight: 72.57 kg

DRUGS (1)
  1. PAXLOVID [Suspect]
     Active Substance: NIRMATRELVIR\RITONAVIR
     Indication: COVID-19 treatment
     Dosage: UNK
     Dates: start: 20231118

REACTIONS (5)
  - Anaphylactic shock [Unknown]
  - Dyspnoea [Unknown]
  - Dysgeusia [Unknown]
  - Burning sensation [Unknown]
  - Malaise [Unknown]

NARRATIVE: CASE EVENT DATE: 20231118
